FAERS Safety Report 7062946-8 (Version None)
Quarter: 2010Q4

REPORT INFORMATION
  Report Type: 
  Country: None (occurrence: None)
  Receive Date: 20101026
  Receipt Date: 20100419
  Transmission Date: 20110411
  Serious: No
  Sender: FDA-Public Use
  Company Number: US-PFIZER INC-2010003745

PATIENT
  Sex: Female
  Weight: 67 kg

DRUGS (2)
  1. LIPITOR [Suspect]
     Indication: BLOOD CHOLESTEROL INCREASED
     Dosage: 40 MG, 1X/DAY
     Route: 048
     Dates: start: 20091202
  2. LEVOTHYROXINE [Concomitant]
     Indication: HYPOTHYROIDISM
     Dosage: 25 UG, DOSE UNKNOWN

REACTIONS (5)
  - ABDOMINAL PAIN [None]
  - BLOOD URINE PRESENT [None]
  - GASTROINTESTINAL PAIN [None]
  - MICTURITION DISORDER [None]
  - POSTURE ABNORMAL [None]
